FAERS Safety Report 7064091-4 (Version None)
Quarter: 2010Q4

REPORT INFORMATION
  Report Type: 
  Country: None (occurrence: None)
  Receive Date: 20101027
  Receipt Date: 20101018
  Transmission Date: 20110411
  Serious: Yes (Hospitalization)
  Sender: FDA-Public Use
  Company Number: NZ-ELI_LILLY_AND_COMPANY-NZ201007003503

PATIENT
  Sex: Male

DRUGS (7)
  1. HUMALOG MIX 75/25 [Suspect]
     Indication: TYPE 2 DIABETES MELLITUS
     Dosage: 20 U, UNKNOWN
     Route: 065
  2. HUMALOG MIX 75/25 [Suspect]
     Dosage: 8 U, AS NEEDED
  3. HUMALOG [Suspect]
     Indication: TYPE 2 DIABETES MELLITUS
     Dosage: UNK, AS NEEDED
     Route: 065
     Dates: start: 20100709, end: 20100711
  4. SIMVASTATIN [Concomitant]
     Dosage: UNK, DAILY (1/D)
  5. ASPIRIN [Concomitant]
     Dosage: UNK, DAILY (1/D)
  6. FUROSEMIDE [Concomitant]
     Dosage: UNK, DAILY (1/D)
  7. GLICLAZIDE [Concomitant]

REACTIONS (2)
  - HYPERGLYCAEMIA [None]
  - WRONG DRUG ADMINISTERED [None]
